FAERS Safety Report 6335436-5 (Version None)
Quarter: 2009Q3

REPORT INFORMATION
  Report Type: 
  Country: None (occurrence: None)
  Receive Date: 20090831
  Receipt Date: 20090820
  Transmission Date: 20100115
  Serious: Yes (Death, Life-Threatening)
  Sender: FDA-Public Use
  Company Number: JP-WYE-H10345409

PATIENT
  Age: 75 Year
  Sex: Male

DRUGS (10)
  1. ANCARON [Suspect]
     Indication: ARRHYTHMIA
     Route: 048
     Dates: start: 20080101, end: 20090710
  2. ALFACALCIDOL [Concomitant]
     Indication: VITAMIN D DEFICIENCY
     Route: 048
  3. SELBEX [Concomitant]
     Indication: PROPHYLAXIS AGAINST GASTROINTESTINAL ULCER
     Route: 048
  4. WARFARIN POTASSIUM [Concomitant]
     Indication: ANTICOAGULANT THERAPY
     Route: 048
  5. CALCIUM CARBONATE [Concomitant]
     Indication: HYPERPHOSPHATAEMIA
     Route: 048
  6. SENNARIDE [Concomitant]
     Indication: CONSTIPATION
     Route: 048
  7. HALCION [Concomitant]
     Indication: INSOMNIA
     Route: 048
  8. TOLEDOMIN [Concomitant]
     Indication: DEPRESSED MOOD
     Route: 048
  9. RADICUT [Suspect]
     Indication: CEREBELLAR INFARCTION
     Dosage: UNKNOWN
     Dates: start: 20090701, end: 20090717
  10. AMLODIPINE BESYLATE [Concomitant]
     Route: 048

REACTIONS (2)
  - INTERSTITIAL LUNG DISEASE [None]
  - PNEUMONIA CYTOMEGALOVIRAL [None]
